FAERS Safety Report 21456547 (Version 11)
Quarter: 2025Q2

REPORT INFORMATION
  Report Type: Report from Study
  Country: US (occurrence: US)
  Receive Date: 20221014
  Receipt Date: 20250604
  Transmission Date: 20250716
  Serious: Yes (Hospitalization)
  Sender: TAKEDA
  Company Number: US-TAKEDA-2021TUS042438

PATIENT
  Sex: Female
  Weight: 72 kg

DRUGS (31)
  1. HUMAN IMMUNOGLOBULIN G [Suspect]
     Active Substance: HUMAN IMMUNOGLOBULIN G
     Indication: Immunodeficiency common variable
     Dosage: 40 GRAM, Q3WEEKS
     Dates: start: 20210330
  2. HUMAN IMMUNOGLOBULIN G [Suspect]
     Active Substance: HUMAN IMMUNOGLOBULIN G
     Dosage: 40 GRAM, Q4WEEKS
  3. HUMAN IMMUNOGLOBULIN G [Suspect]
     Active Substance: HUMAN IMMUNOGLOBULIN G
     Dosage: 40 GRAM, Q3WEEKS
  4. ACETAMINOPHEN [Concomitant]
     Active Substance: ACETAMINOPHEN
  5. EPINEPHRINE [Concomitant]
     Active Substance: EPINEPHRINE
  6. ZYRTEC [Concomitant]
     Active Substance: CETIRIZINE HYDROCHLORIDE
  7. DIPHENHYDRAMINE [Concomitant]
     Active Substance: DIPHENHYDRAMINE
  8. SODIUM CHLORIDE [Concomitant]
     Active Substance: SODIUM CHLORIDE
  9. ATORVASTATIN CALCIUM [Concomitant]
     Active Substance: ATORVASTATIN CALCIUM
  10. GABAPENTIN [Concomitant]
     Active Substance: GABAPENTIN
  11. ASPIRIN [Concomitant]
     Active Substance: ASPIRIN
  12. IRON [Concomitant]
     Active Substance: IRON
  13. VITAMIN C [Concomitant]
     Active Substance: ASCORBIC ACID
  14. FLUOXETINE HYDROCHLORIDE [Concomitant]
     Active Substance: FLUOXETINE HYDROCHLORIDE
  15. LIDOCAINE [Concomitant]
     Active Substance: LIDOCAINE
  16. DICLOXACILLIN SODIUM [Concomitant]
     Active Substance: DICLOXACILLIN SODIUM
  17. BUDESONIDE [Concomitant]
     Active Substance: BUDESONIDE
  18. YUPELRI [Concomitant]
     Active Substance: REVEFENACIN
  19. PERFOROMIST [Concomitant]
     Active Substance: FORMOTEROL FUMARATE DIHYDRATE
  20. PAROXETINE [Concomitant]
     Active Substance: PAROXETINE
  21. CALCIUM [Concomitant]
     Active Substance: CALCIUM
  22. GINKGO [Concomitant]
     Active Substance: GINKGO
  23. BREO ELLIPTA [Concomitant]
     Active Substance: FLUTICASONE FUROATE\VILANTEROL TRIFENATATE
  24. ROPINIROLE [Concomitant]
     Active Substance: ROPINIROLE
  25. FLONASE ALLERGY RELIEF [Concomitant]
     Active Substance: FLUTICASONE PROPIONATE
  26. ADVAIR HFA [Concomitant]
     Active Substance: FLUTICASONE PROPIONATE\SALMETEROL XINAFOATE
  27. VITAMIN D3 [Concomitant]
     Active Substance: CHOLECALCIFEROL
  28. DIPHENHYDRAMINE HYDROCHLORIDE [Concomitant]
     Active Substance: DIPHENHYDRAMINE HYDROCHLORIDE
  29. Calcium plus d3 [Concomitant]
  30. TYLENOL ARTHRITIS PAIN [Concomitant]
     Active Substance: ACETAMINOPHEN
  31. ALBUTEROL SULFATE [Concomitant]
     Active Substance: ALBUTEROL SULFATE

REACTIONS (15)
  - Hernia [Unknown]
  - Bronchitis [Unknown]
  - Discharge [Unknown]
  - Productive cough [Unknown]
  - Skin infection [Unknown]
  - Respiratory tract infection [Unknown]
  - Seasonal allergy [Unknown]
  - Infusion related reaction [Unknown]
  - Infusion site discolouration [Unknown]
  - Abdominal pain lower [Unknown]
  - Dyspnoea [Unknown]
  - Pain in extremity [Unknown]
  - Pyrexia [Unknown]
  - Tremor [Unknown]
  - Chills [Unknown]
